FAERS Safety Report 9742949 (Version 2)
Quarter: 2013Q4

REPORT INFORMATION
  Report Type: Spontaneous
  Country: US (occurrence: US)
  Receive Date: 20131210
  Receipt Date: 20131210
  Transmission Date: 20140711
  Serious: No
  Sender: FDA-Public Use
  Company Number: US-TEVA-420228USA

PATIENT
  Sex: Male

DRUGS (2)
  1. BUDESONIDE [Suspect]
     Dosage: 0.5 MG/2 ML
     Route: 055
  2. ADVAIR [Suspect]

REACTIONS (1)
  - Intraocular pressure increased [Unknown]
